FAERS Safety Report 4307789-0 (Version None)
Quarter: 2004Q1

REPORT INFORMATION
  Report Type: 
  Country: None (occurrence: None)
  Receive Date: 20040225
  Receipt Date: 20030620
  Transmission Date: 20041129
  Serious: Yes (Disabling)
  Sender: FDA-Public Use
  Company Number: WAES 0306USA02563

PATIENT
  Age: 68 Year
  Sex: Female
  Weight: 67.1324 kg

DRUGS (9)
  1. ZOCOR [Suspect]
     Indication: HYPERLIPIDAEMIA
     Dosage: 20/DAILY/PO
     Route: 048
     Dates: start: 19990401
  2. ACIPHEX [Concomitant]
  3. ALLEGRA [Concomitant]
  4. FOSAMAX [Concomitant]
  5. LEVOXYL [Concomitant]
  6. LOPRESSOR [Concomitant]
  7. LOTREL [Concomitant]
  8. PLAVIX [Concomitant]
  9. HYDROCHLOROTHIAZIDE [Concomitant]

REACTIONS (2)
  - LIBIDO DECREASED [None]
  - MEDICATION ERROR [None]
